FAERS Safety Report 8758513 (Version 2)
Quarter: 2012Q4

REPORT INFORMATION
  Report Type: 
  Country: US (occurrence: None)
  Receive Date: 20120820
  Receipt Date: 20121010
  Transmission Date: 20130627
  Serious: Yes (Death)
  Sender: FDA-Public Use
  Company Number: DSA_58949_2012

PATIENT
  Age: 57 Year
  Sex: Female

DRUGS (11)
  1. XENAZINE [Suspect]
     Indication: HUNTINGTON^S DISEASE
     Dosage: 1.25 tablets TID
  2. XENAZINE [Suspect]
     Indication: HUNTINGTON^S DISEASE
     Route: 048
  3. AMANTADINE [Concomitant]
  4. MIRALAX /00754501/ [Concomitant]
  5. HALDOL /00027401/ [Concomitant]
  6. DESIPRAMINE [Concomitant]
  7. CLONAZEPAM [Concomitant]
  8. MULTIVITAMIN /00097801/ [Concomitant]
  9. IBUPROFEN [Concomitant]
  10. CLARITIN-D [Concomitant]
  11. COQ10 /00517201/ [Concomitant]

REACTIONS (8)
  - Death [None]
  - Disease recurrence [None]
  - Breast cancer metastatic [None]
  - Ataxia [None]
  - Dysphagia [None]
  - Cognitive disorder [None]
  - Parkinsonism [None]
  - Chorea [None]
